FAERS Safety Report 21064633 (Version 1)
Quarter: 2022Q3

REPORT INFORMATION
  Report Type: Report from Study
  Country: JP (occurrence: JP)
  Receive Date: 20220711
  Receipt Date: 20220711
  Transmission Date: 20221026
  Serious: Yes (Hospitalization)
  Sender: FDA-Public Use
  Company Number: JP-PFIZER INC-2020295262

PATIENT
  Age: 54 Year
  Sex: Female
  Weight: 61 kg

DRUGS (11)
  1. ABROCITINIB [Suspect]
     Active Substance: ABROCITINIB
     Indication: Dermatitis atopic
     Dosage: 100 MG, 1X/DAY
     Route: 048
     Dates: start: 20191211, end: 20200803
  2. LOXOPROFEN SODIUM DIHYDRATE [Concomitant]
     Active Substance: LOXOPROFEN SODIUM DIHYDRATE
     Indication: Headache
     Dosage: UNK
     Dates: start: 1996
  3. HEPARINOID [Concomitant]
     Indication: Dry skin prophylaxis
     Dosage: UNK
     Dates: start: 20190718
  4. WHITE PETROLATUM [Concomitant]
     Active Substance: PETROLATUM
     Indication: Dry skin prophylaxis
     Dosage: UNK
     Dates: start: 20200520
  5. BETAMETHASONE VALERATE [Concomitant]
     Active Substance: BETAMETHASONE VALERATE
     Indication: Dermatitis atopic
     Dosage: UNK
     Dates: start: 20190725
  6. HYDROCORTISONE BUTYRATE [Concomitant]
     Active Substance: HYDROCORTISONE BUTYRATE
     Indication: Dermatitis atopic
     Dosage: UNK
     Dates: start: 20190725
  7. TACROLIMUS [Concomitant]
     Active Substance: TACROLIMUS
     Indication: Dermatitis atopic
     Dosage: UNK
     Dates: start: 20190725
  8. DIFLUPREDNATE [Concomitant]
     Active Substance: DIFLUPREDNATE
     Indication: Dermatitis atopic
     Dosage: UNK
     Dates: start: 20200520
  9. EPINASTINE HYDROCHLORIDE [Concomitant]
     Active Substance: EPINASTINE HYDROCHLORIDE
     Indication: Dermatitis atopic
     Dosage: UNK
     Dates: start: 20200301
  10. HEPARINOID [Concomitant]
     Indication: Dry skin prophylaxis
     Dosage: UNK
     Dates: start: 20190718
  11. HEPARINOID [Concomitant]
     Indication: Dry skin prophylaxis
     Dosage: UNK
     Dates: start: 20190725

REACTIONS (1)
  - Cellulitis [Recovered/Resolved]

NARRATIVE: CASE EVENT DATE: 20200729
